FAERS Safety Report 7553477-7 (Version None)
Quarter: 2011Q2

REPORT INFORMATION
  Report Type: 
  Country: None (occurrence: None)
  Receive Date: 20110617
  Receipt Date: 20110606
  Transmission Date: 20111010
  Serious: Yes (Other)
  Sender: FDA-Public Use
  Company Number: BR-BAYER-2011-048808

PATIENT
  Age: 49 Year
  Sex: Female
  Weight: 63 kg

DRUGS (3)
  1. MIRENA [Suspect]
     Indication: ENDOMETRIOSIS
  2. MIRENA [Suspect]
     Indication: MENSTRUAL DISORDER
     Dosage: 20 MCG/24HR, CONT
     Route: 015
     Dates: start: 20090314
  3. MIRENA [Suspect]
     Indication: CONTRACEPTION

REACTIONS (5)
  - BREAST MASS [None]
  - VAGINAL DISCHARGE [None]
  - HYPOMENORRHOEA [None]
  - URINARY TRACT INFECTION [None]
  - MENORRHAGIA [None]
